FAERS Safety Report 16905754 (Version 2)
Quarter: 2019Q4

REPORT INFORMATION
  Report Type: Spontaneous
  Country: JP (occurrence: JP)
  Receive Date: 20191010
  Receipt Date: 20191226
  Transmission Date: 20200122
  Serious: Yes (Life-Threatening, Hospitalization)
  Sender: FDA-Public Use
  Company Number: JP-ELI_LILLY_AND_COMPANY-JP201910003166

PATIENT
  Age: 75 Year
  Sex: Male
  Weight: 46 kg

DRUGS (12)
  1. BASSAMIN [Suspect]
     Active Substance: ASPIRIN\DIHYDROXYALUMINUM AMINOACETATE\MAGNESIUM CARBONATE
     Dosage: 81 MG, DAILY
     Route: 048
     Dates: start: 20180814, end: 20180814
  2. PRASUGREL HYDROCHLORIDE [Suspect]
     Active Substance: PRASUGREL HYDROCHLORIDE
     Dosage: 3.75 MG, DAILY
     Route: 048
     Dates: start: 20180810, end: 20180810
  3. ROSUVASTATIN. [Concomitant]
     Active Substance: ROSUVASTATIN
  4. HEPARIN [Suspect]
     Active Substance: HEPARIN SODIUM
     Indication: ACUTE MYOCARDIAL INFARCTION
     Dosage: 1000 INTERNATIONAL UNIT, DAILY
     Route: 042
     Dates: start: 20180809, end: 20180809
  5. NICORANDIL [Concomitant]
     Active Substance: NICORANDIL
     Dosage: UNK
     Dates: start: 20180810, end: 20180810
  6. IMIDAPRIL [Concomitant]
     Active Substance: IMIDAPRIL
     Dosage: UNK
     Dates: start: 20180810, end: 20180810
  7. MAGNESIUM OXIDE. [Concomitant]
     Active Substance: MAGNESIUM OXIDE
     Dosage: UNK
     Dates: start: 20180810, end: 20180810
  8. BASSAMIN [Suspect]
     Active Substance: ASPIRIN\DIHYDROXYALUMINUM AMINOACETATE\MAGNESIUM CARBONATE
     Indication: ACUTE MYOCARDIAL INFARCTION
     Dosage: 243 MG, DAILY
     Route: 048
     Dates: start: 20180809, end: 20180809
  9. BASSAMIN [Suspect]
     Active Substance: ASPIRIN\DIHYDROXYALUMINUM AMINOACETATE\MAGNESIUM CARBONATE
     Dosage: 81 MG, DAILY
     Route: 048
     Dates: start: 20180810, end: 20180810
  10. PRASUGREL HYDROCHLORIDE [Suspect]
     Active Substance: PRASUGREL HYDROCHLORIDE
     Indication: ACUTE MYOCARDIAL INFARCTION
     Dosage: 20 MG, DAILY
     Route: 065
  11. BISONO [Concomitant]
     Active Substance: BISOPROLOL
     Dosage: UNK
     Dates: start: 20180809, end: 20180809
  12. TAKECAB [Concomitant]
     Active Substance: VONOPRAZAN FUMURATE
     Dosage: UNK
     Dates: start: 20180810, end: 20180810

REACTIONS (2)
  - Obstructive shock [Recovered/Resolved]
  - Mediastinal haematoma [Recovered/Resolved]

NARRATIVE: CASE EVENT DATE: 20180810
